FAERS Safety Report 16021431 (Version 4)
Quarter: 2019Q3

REPORT INFORMATION
  Report Type: Report from Study
  Country: US (occurrence: US)
  Receive Date: 20190301
  Receipt Date: 20190711
  Transmission Date: 20191004
  Serious: Yes (Hospitalization, Other)
  Sender: FDA-Public Use
  Company Number: US-ROCHE-2269327

PATIENT
  Age: 67 Year
  Sex: Female

DRUGS (15)
  1. PIRFENIDONE. [Suspect]
     Active Substance: PIRFENIDONE
     Indication: PRODUCT USED FOR UNKNOWN INDICATION
     Route: 065
     Dates: end: 20180716
  2. GUAIFENESIN. [Concomitant]
     Active Substance: GUAIFENESIN
  3. PREDNISONE. [Concomitant]
     Active Substance: PREDNISONE
  4. RANITIDINE. [Concomitant]
     Active Substance: RANITIDINE
  5. ONDANSETRON [Concomitant]
     Active Substance: ONDANSETRON
  6. ESOMEPRAZOLE MAGNESIUM. [Concomitant]
     Active Substance: ESOMEPRAZOLE MAGNESIUM
  7. MYCOPHENOLATE MOFETIL. [Suspect]
     Active Substance: MYCOPHENOLATE MOFETIL
     Indication: SYSTEMIC SCLEROSIS PULMONARY
     Dosage: (5 CAPSULES)
     Route: 048
     Dates: start: 20180523
  8. FIBER [Concomitant]
     Active Substance: PSYLLIUM HUSK
  9. DIAZEPAM. [Concomitant]
     Active Substance: DIAZEPAM
  10. MIRTAZAPINE. [Concomitant]
     Active Substance: MIRTAZAPINE
  11. HYDROCODONE [Concomitant]
     Active Substance: HYDROCODONE
  12. LORATADINE. [Concomitant]
     Active Substance: LORATADINE
  13. BUPROPION. [Concomitant]
     Active Substance: BUPROPION
  14. OXYGEN. [Concomitant]
     Active Substance: OXYGEN
  15. DULOXETINE. [Concomitant]
     Active Substance: DULOXETINE

REACTIONS (5)
  - Pulmonary embolism [Unknown]
  - Chest pain [Recovered/Resolved with Sequelae]
  - Pleural effusion [Recovering/Resolving]
  - Pneumonia aspiration [Unknown]
  - Dyspnoea [Recovering/Resolving]

NARRATIVE: CASE EVENT DATE: 20190121
